FAERS Safety Report 11216996 (Version 1)
Quarter: 2015Q2

REPORT INFORMATION
  Report Type: Report from Study
  Country: US (occurrence: US)
  Receive Date: 20150624
  Receipt Date: 20150624
  Transmission Date: 20150821
  Serious: Yes (Life-Threatening, Hospitalization)
  Sender: FDA-Public Use
  Company Number: US-ACTELION-A-NJ2015-117489

PATIENT
  Age: 68 Year
  Sex: Male

DRUGS (3)
  1. TRACLEER [Suspect]
     Active Substance: BOSENTAN\BOSENTAN MONOHYDRATE
     Indication: PULMONARY ARTERIAL HYPERTENSION
     Dosage: UNK
     Route: 048
  2. SILDENAFIL. [Concomitant]
     Active Substance: SILDENAFIL
     Indication: PULMONARY ARTERIAL HYPERTENSION
  3. DIGOXIN. [Concomitant]
     Active Substance: DIGOXIN

REACTIONS (7)
  - Dyspnoea [Recovering/Resolving]
  - Cardiac failure congestive [Recovering/Resolving]
  - Pneumonia [Recovering/Resolving]
  - Bronchitis [Recovering/Resolving]
  - Cardiac disorder [Unknown]
  - Oedema [Recovering/Resolving]
  - Pyrexia [Recovering/Resolving]

NARRATIVE: CASE EVENT DATE: 20150419
